FAERS Safety Report 9206995 (Version 1)
Quarter: 2013Q1

REPORT INFORMATION
  Report Type: Spontaneous
  Country: US (occurrence: None)
  Receive Date: 20120731
  Receipt Date: 20120731
  Transmission Date: 20140127
  Serious: No
  Sender: FDA-Public Use
  Company Number: 2012MZ000308

PATIENT
  Age: 66 Year
  Sex: Female
  Weight: 49.9 kg

DRUGS (2)
  1. XEOMIN [Suspect]
     Indication: TORTICOLLIS
     Dosage: 200 UNIT
     Dates: start: 20120411, end: 20120411
  2. ZANAFLEX [Concomitant]

REACTIONS (4)
  - Gait disturbance [None]
  - Heart rate increased [None]
  - Dizziness [None]
  - Headache [None]
